FAERS Safety Report 13029224 (Version 1)
Quarter: 2016Q4

REPORT INFORMATION
  Report Type: Spontaneous
  Country: US (occurrence: US)
  Receive Date: 20161215
  Receipt Date: 20161215
  Transmission Date: 20170207
  Serious: No
  Sender: FDA-Public Use
  Company Number: US-TEVA-703622USA

PATIENT

DRUGS (1)
  1. DEXTROAMPHETAMINE SULFATE. [Suspect]
     Active Substance: DEXTROAMPHETAMINE SULFATE
     Route: 065

REACTIONS (6)
  - Lethargy [Unknown]
  - Product quality issue [Unknown]
  - Anxiety [Unknown]
  - Product substitution issue [Unknown]
  - Adverse event [Unknown]
  - Feeling abnormal [Unknown]
